FAERS Safety Report 23830385 (Version 2)
Quarter: 2024Q3

REPORT INFORMATION
  Report Type: Spontaneous
  Country: US (occurrence: US)
  Receive Date: 20240508
  Receipt Date: 20240913
  Transmission Date: 20241017
  Serious: No
  Sender: GLAXOSMITHKLINE
  Company Number: US-GSK-US2024AMR056451

PATIENT
  Age: 67 Year
  Sex: Female

DRUGS (3)
  1. BENLYSTA [Suspect]
     Active Substance: BELIMUMAB
     Indication: Systemic lupus erythematosus
     Dosage: 800 MG,AT WEEKS 0,2,4 FOR LOADING DOSES THEN EVERY 4 WEEKS
     Route: 042
  2. BENLYSTA [Suspect]
     Active Substance: BELIMUMAB
     Dosage: 800 MG,AT WEEKS 0,2,4 FOR LOADING DOSES THEN EVERY 4 WEEKS
  3. BENLYSTA [Suspect]
     Active Substance: BELIMUMAB
     Indication: Systemic lupus erythematosus
     Dosage: 800 MG, Q4W, 400MG VIAL
     Route: 042

REACTIONS (6)
  - Animal bite [Unknown]
  - Blood pressure increased [Recovering/Resolving]
  - Pollakiuria [Unknown]
  - Skin discolouration [Unknown]
  - Dry skin [Unknown]
  - Thyroid disorder [Unknown]

NARRATIVE: CASE EVENT DATE: 20240319
